FAERS Safety Report 7086191-5 (Version None)
Quarter: 2010Q4

REPORT INFORMATION
  Report Type: 
  Country: None (occurrence: None)
  Receive Date: 20101105
  Receipt Date: 20101027
  Transmission Date: 20110411
  Serious: Yes (Hospitalization, Other)
  Sender: FDA-Public Use
  Company Number: US-ABBOTT-10P-163-0681916-00

PATIENT
  Sex: Female
  Weight: 50.848 kg

DRUGS (2)
  1. HUMIRA [Suspect]
     Indication: CROHN'S DISEASE
     Dates: start: 20100501, end: 20100601
  2. PENTASA [Concomitant]
     Indication: CROHN'S DISEASE

REACTIONS (2)
  - ENTERITIS INFECTIOUS [None]
  - INTESTINAL STENOSIS [None]
